FAERS Safety Report 12105092 (Version 1)
Quarter: 2016Q1

REPORT INFORMATION
  Report Type: Spontaneous
  Country: FR (occurrence: FR)
  Receive Date: 20160223
  Receipt Date: 20160223
  Transmission Date: 20160526
  Serious: Yes (Death, Congenital Anomaly)
  Sender: FDA-Public Use
  Company Number: FR-JNJFOC-20160215490

PATIENT

DRUGS (5)
  1. DEPAKOTE [Suspect]
     Active Substance: DIVALPROEX SODIUM
     Indication: DEPRESSION
     Dosage: MOTHER^S DOSE 500 MG 2 TABLETS PER DAY
     Route: 064
     Dates: start: 20140101, end: 20160112
  2. SERESTA [Suspect]
     Active Substance: OXAZEPAM
     Indication: DEPRESSION
     Dosage: MOTHER^S DOSE, ??FREQUENCY ONE TABLET PER DAY ON DEMAND
     Route: 064
     Dates: start: 20150101, end: 20160112
  3. SEROPAM [Suspect]
     Active Substance: ESCITALOPRAM OXALATE
     Indication: DEPRESSION
     Dosage: MOTHER^S DOSE,STRENGTH 20 MG FREQUENCY HALF A TABLET PER DAY
     Route: 064
     Dates: start: 20150101
  4. RISPERDAL [Suspect]
     Active Substance: RISPERIDONE
     Indication: DEPRESSION
     Dosage: MOTHER^S DOSE, ??1 TABLET PER DAY, ON DEMAND
     Route: 064
     Dates: start: 20140101, end: 20160112
  5. TERCIAN [Suspect]
     Active Substance: CYAMEMAZINE
     Indication: DEPRESSION
     Dosage: MOTHER^S DOSE STRENGTH 25 MGFREQUENCY HALF A TABLET PER DAY IF NEEDED
     Route: 064
     Dates: start: 20140101, end: 20160112

REACTIONS (3)
  - Foetal exposure during pregnancy [Fatal]
  - Maternal drugs affecting foetus [None]
  - Spina bifida [Fatal]

NARRATIVE: CASE EVENT DATE: 20160122
